FAERS Safety Report 18392182 (Version 1)
Quarter: 2020Q4

REPORT INFORMATION
  Report Type: Spontaneous
  Country: IT (occurrence: IT)
  Receive Date: 20201016
  Receipt Date: 20201016
  Transmission Date: 20210114
  Serious: Yes (Life-Threatening, Hospitalization)
  Sender: FDA-Public Use
  Company Number: IT-MYLANLABS-2020M1086990

PATIENT
  Age: 29 Year
  Sex: Female

DRUGS (10)
  1. LEVOFLOXACIN. [Suspect]
     Active Substance: LEVOFLOXACIN
     Indication: ANTIBIOTIC THERAPY
  2. AMIKACIN. [Suspect]
     Active Substance: AMIKACIN
     Indication: PSEUDOMONAS INFECTION
     Dosage: UNK
     Route: 065
  3. MEROPENEM. [Suspect]
     Active Substance: MEROPENEM
     Indication: PSEUDOMONAS INFECTION
     Dosage: HIGH-DOSE EXTENDED-INFUSION
  4. AMIKACIN. [Suspect]
     Active Substance: AMIKACIN
     Indication: ANTIBIOTIC THERAPY
  5. CEFTAZIDIME. [Suspect]
     Active Substance: CEFTAZIDIME
     Indication: ANTIBIOTIC THERAPY
  6. LEVOFLOXACIN. [Suspect]
     Active Substance: LEVOFLOXACIN
     Indication: PSEUDOMONAS INFECTION
     Dosage: UNK
     Route: 065
  7. COLISTIN [Suspect]
     Active Substance: COLISTIN
     Indication: PSEUDOMONAS INFECTION
     Dosage: HIGH-DOSE
     Route: 065
  8. COLISTIN [Suspect]
     Active Substance: COLISTIN
     Indication: ANTIBIOTIC THERAPY
  9. MEROPENEM. [Suspect]
     Active Substance: MEROPENEM
     Indication: ANTIBIOTIC THERAPY
  10. CEFTAZIDIME. [Suspect]
     Active Substance: CEFTAZIDIME
     Indication: PSEUDOMONAS INFECTION
     Dosage: UNK
     Route: 065

REACTIONS (2)
  - Drug resistance [Unknown]
  - Drug ineffective [Unknown]
